FAERS Safety Report 7339072-3 (Version None)
Quarter: 2011Q1

REPORT INFORMATION
  Report Type: 
  Country: None (occurrence: None)
  Receive Date: 20110308
  Receipt Date: 20110304
  Transmission Date: 20110831
  Serious: Yes (Other)
  Sender: FDA-Public Use
  Company Number: ES-PFIZER INC-2011041261

PATIENT
  Age: 74 Year
  Sex: Male

DRUGS (2)
  1. CARDYL [Concomitant]
     Indication: HYPERTENSION
     Dosage: 300 MG, UNK
  2. CARDURA [Suspect]
     Indication: HYPERTENSION
     Dosage: 1/2 TABLET OF CARDURAN NEO.
     Dates: start: 20110201

REACTIONS (1)
  - ASTHMA [None]
